FAERS Safety Report 19065100 (Version 2)
Quarter: 2021Q1

REPORT INFORMATION
  Report Type: Report from Study
  Country: None (occurrence: SE)
  Receive Date: 20210326
  Receipt Date: 20210329
  Transmission Date: 20210420
  Serious: Yes (Other)
  Sender: FDA-Public Use
  Company Number: SE-ABBVIE-21K-150-3830324-00

PATIENT
  Age: 55 Year
  Sex: Male

DRUGS (10)
  1. DUODOPA [Suspect]
     Active Substance: CARBIDOPA\LEVODOPA
     Dosage: MD: 5 ML, CD: 1.9 ML/H, ED: 0.9ML.
     Route: 050
     Dates: start: 20210322, end: 20210322
  2. DUODOPA [Suspect]
     Active Substance: CARBIDOPA\LEVODOPA
     Dosage: CD INCREASED TO 2.7 ML/H.
     Route: 050
     Dates: start: 20210322, end: 20210322
  3. DUODOPA [Suspect]
     Active Substance: CARBIDOPA\LEVODOPA
     Dosage: CD INCREASED TO 3.6 ML/H.
     Route: 050
     Dates: start: 20210323, end: 202103
  4. DUODOPA [Suspect]
     Active Substance: CARBIDOPA\LEVODOPA
     Indication: PARKINSON^S DISEASE
     Route: 050
     Dates: start: 20170119, end: 2017
  5. DUODOPA [Suspect]
     Active Substance: CARBIDOPA\LEVODOPA
     Dosage: ED INCREASED TO 3 ML.
     Route: 050
     Dates: start: 20210322, end: 202103
  6. DUODOPA [Suspect]
     Active Substance: CARBIDOPA\LEVODOPA
     Dosage: EXTRA DOSE: 1.4 ML
     Route: 050
     Dates: start: 20210323, end: 20210323
  7. DUODOPA [Suspect]
     Active Substance: CARBIDOPA\LEVODOPA
     Dosage: MD INCREASED TO 5.5 ML.
     Route: 050
     Dates: start: 20210324, end: 20210324
  8. DUODOPA [Suspect]
     Active Substance: CARBIDOPA\LEVODOPA
     Dosage: EXTRA DOSE: 1.4 ML.
     Route: 050
     Dates: start: 20210322, end: 20210322
  9. DUODOPA [Suspect]
     Active Substance: CARBIDOPA\LEVODOPA
     Dosage: ED INCREASED TO 1.5 ML, CD INCREASED TO 3.3 ML/H.
     Route: 050
     Dates: start: 20210323, end: 20210323
  10. DUODOPA [Suspect]
     Active Substance: CARBIDOPA\LEVODOPA
     Dosage: CONTINUOUS DOSE INCREASED TO 3.8ML/H.
     Route: 050
     Dates: start: 20210324

REACTIONS (1)
  - Nasal neoplasm benign [Unknown]
